FAERS Safety Report 12427370 (Version 1)
Quarter: 2016Q2

REPORT INFORMATION
  Report Type: Report from Study
  Country: CN (occurrence: CN)
  Receive Date: 20160602
  Receipt Date: 20160602
  Transmission Date: 20160815
  Serious: Yes (Other)
  Sender: FDA-Public Use
  Company Number: CN-ROCHE-1471152

PATIENT

DRUGS (4)
  1. LEUCOVORIN. [Suspect]
     Active Substance: LEUCOVORIN
     Indication: RECTAL CANCER
     Route: 065
  2. OXALIPLATIN. [Suspect]
     Active Substance: OXALIPLATIN
     Indication: RECTAL CANCER
     Dosage: ON DAYS 1, 8, 22, AND 29
     Route: 065
  3. CAPECITABINE. [Suspect]
     Active Substance: CAPECITABINE
     Indication: RECTAL CANCER
     Dosage: 1600 MG/M2 DAYS 1-14, 22-35 (CAP-ONLY GROUP) AND 1300 MG/M2 TWICE DAILY DAYS 1-14, 22-35 (IN CAPOX G
     Route: 065
  4. FLUOROURACIL. [Suspect]
     Active Substance: FLUOROURACIL
     Indication: RECTAL CANCER
     Route: 065

REACTIONS (10)
  - Vomiting [Unknown]
  - Thrombocytopenia [Unknown]
  - Fatigue [Unknown]
  - Decreased appetite [Unknown]
  - Leukopenia [Unknown]
  - Radiation skin injury [Unknown]
  - Diarrhoea [Unknown]
  - Rectal tenesmus [Unknown]
  - Nausea [Unknown]
  - Proctitis [Unknown]
